FAERS Safety Report 18261676 (Version 1)
Quarter: 2020Q3

REPORT INFORMATION
  Report Type: Spontaneous
  Country: US (occurrence: US)
  Receive Date: 20200911
  Receipt Date: 20200911
  Transmission Date: 20201103
  Serious: No
  Sender: FDA-Public Use
  Company Number: None

PATIENT
  Age: 73 Year
  Sex: Male
  Weight: 104.6 kg

DRUGS (12)
  1. COLACE [Concomitant]
     Active Substance: DOCUSATE SODIUM
  2. AVODART 0.5MG [Concomitant]
  3. TAMSULONSIN 0.4MG [Concomitant]
  4. FLUVOXAMINE 150MG [Concomitant]
  5. LORAZEPAM 0.5MG [Concomitant]
     Active Substance: LORAZEPAM
  6. LOPERAMINE 2MH [Concomitant]
  7. CAPECITABINE. [Suspect]
     Active Substance: CAPECITABINE
     Indication: RECTAL CANCER
     Route: 048
     Dates: start: 20200817
  8. ABILIFY MYCITE 15MG [Concomitant]
  9. DULCOLAX 5MG [Concomitant]
  10. VITAMIN B 12 500MG [Concomitant]
  11. BACTRIM DS [Concomitant]
     Active Substance: SULFAMETHOXAZOLE\TRIMETHOPRIM
  12. VITAMIN D 1.25MG [Concomitant]

REACTIONS (2)
  - Erythema [None]
  - Rash [None]

NARRATIVE: CASE EVENT DATE: 20200824
